FAERS Safety Report 8345934-0 (Version None)
Quarter: 2012Q2

REPORT INFORMATION
  Report Type: 
  Country: None (occurrence: None)
  Receive Date: 20120507
  Receipt Date: 20120425
  Transmission Date: 20120825
  Serious: Yes (Life-Threatening, Hospitalization, Other)
  Sender: FDA-Public Use
  Company Number: DSA_41229_2009

PATIENT
  Sex: Female
  Weight: 60 kg

DRUGS (4)
  1. WELLBUTRIN [Suspect]
     Indication: PRODUCT USED FOR UNKNOWN INDICATION
     Dosage: (90 DF 1X, 90 TABLETS AT ONE TIME, NOT THE PRESCRIBED AMOUNT UNKNOWN)
  2. TEMESTA /00273201/ [Concomitant]
  3. SEROQUEL [Concomitant]
  4. TRAZODONE HCL [Concomitant]

REACTIONS (6)
  - SUICIDE ATTEMPT [None]
  - CONVULSION [None]
  - RESPIRATORY ARREST [None]
  - GENERAL PHYSICAL HEALTH DETERIORATION [None]
  - COMA [None]
  - OVERDOSE [None]
